FAERS Safety Report 6821433-X (Version None)
Quarter: 2010Q3

REPORT INFORMATION
  Report Type: 
  Country: None (occurrence: None)
  Receive Date: 20100707
  Receipt Date: 20081119
  Transmission Date: 20110219
  Serious: No
  Sender: FDA-Public Use
  Company Number: US-PFIZER INC-2008084470

PATIENT
  Sex: Female
  Weight: 60.454 kg

DRUGS (7)
  1. ZOLOFT [Suspect]
     Indication: DEPRESSION
     Dates: start: 20080701
  2. PROTONIX [Concomitant]
  3. LUVOX [Concomitant]
  4. REQUIP [Concomitant]
  5. MECLIZINE [Concomitant]
  6. NEURONTIN [Concomitant]
  7. XANAX [Concomitant]
     Dates: end: 20080101

REACTIONS (1)
  - DRUG SCREEN FALSE POSITIVE [None]
